FAERS Safety Report 4371195-3 (Version None)
Quarter: 2004Q2

REPORT INFORMATION
  Report Type: 
  Country: None (occurrence: None)
  Receive Date: 20040604
  Receipt Date: 20040603
  Transmission Date: 20050107
  Serious: Yes (Life-Threatening, Hospitalization, Disabling, Other)
  Sender: FDA-Public Use
  Company Number: US-GLAXOSMITHKLINE-A0513288A

PATIENT
  Age: 17 Year
  Sex: Female

DRUGS (2)
  1. VALTREX [Suspect]
     Indication: HERPES SIMPLEX
     Dosage: 1000MG TWICE PER DAY
     Route: 048
     Dates: start: 20040401
  2. NO CONCURRENT MEDICATION [Concomitant]

REACTIONS (1)
  - RETINAL VEIN OCCLUSION [None]
